FAERS Safety Report 8911869 (Version 2)
Quarter: 2012Q4

REPORT INFORMATION
  Report Type: 
  Country: US (occurrence: US)
  Receive Date: 20121116
  Receipt Date: 20121203
  Transmission Date: 20130627
  Serious: No
  Sender: FDA-Public Use
  Company Number: US-JNJFOC-20121016440

PATIENT
  Sex: Female
  Weight: 58.97 kg

DRUGS (3)
  1. INVEGA SUSTENNA [Suspect]
     Indication: HALLUCINATION
     Route: 030
  2. RISPERDAL [Concomitant]
     Indication: HALLUCINATION
     Route: 048
     Dates: start: 2012
  3. LOXAPINE [Concomitant]
     Indication: PRODUCT USED FOR UNKNOWN INDICATION
     Route: 065
     Dates: start: 2012

REACTIONS (1)
  - Drug dose omission [Unknown]
